FAERS Safety Report 7001252-4 (Version None)
Quarter: 2010Q3

REPORT INFORMATION
  Report Type: 
  Country: None (occurrence: None)
  Receive Date: 20100920
  Receipt Date: 20070608
  Transmission Date: 20110219
  Serious: Yes (Other)
  Sender: FDA-Public Use
  Company Number: US-ASTRAZENECA-2006UW10847

PATIENT
  Age: 30 Year
  Sex: Male
  Weight: 90.7 kg

DRUGS (8)
  1. SEROQUEL [Suspect]
     Indication: SLEEP DISORDER
     Route: 048
     Dates: start: 19960101, end: 20030101
  2. RISPERDAL [Concomitant]
     Dates: start: 20030101
  3. THORAZINE [Concomitant]
     Dates: start: 19800101, end: 19950101
  4. MARAJUANA [Concomitant]
     Dosage: EVERYDAY
     Dates: start: 19900101, end: 20060101
  5. COCAINE [Concomitant]
     Dosage: 3 TIMES
     Dates: start: 20040101
  6. ALBUTEROL SULATE [Concomitant]
     Dosage: 2 PUFFS FOUR TIMES A DAY
     Route: 055
     Dates: start: 19961127
  7. BECONASE [Concomitant]
     Dosage: 2 PUFFS THREE TIMES A DAY
     Route: 055
     Dates: start: 19961127
  8. TRAZODONE HCL [Concomitant]
     Dates: start: 20030810

REACTIONS (6)
  - CATARACT [None]
  - CATARACT DIABETIC [None]
  - DIABETES MELLITUS [None]
  - DIABETES MELLITUS INADEQUATE CONTROL [None]
  - HYPERGLYCAEMIA [None]
  - TYPE 2 DIABETES MELLITUS [None]
